FAERS Safety Report 17421605 (Version 2)
Quarter: 2020Q3

REPORT INFORMATION
  Report Type: Report from Study
  Country: MY (occurrence: MY)
  Receive Date: 20200214
  Receipt Date: 20200316
  Transmission Date: 20201105
  Serious: Yes (Death, Other)
  Sender: FDA-Public Use
  Company Number: MY-ROCHE-2520355

PATIENT
  Age: 58 Year
  Sex: Male
  Weight: 100 kg

DRUGS (5)
  1. POLATUZUMAB VEDOTIN. [Suspect]
     Active Substance: POLATUZUMAB VEDOTIN
     Indication: DIFFUSE LARGE B-CELL LYMPHOMA
     Route: 065
     Dates: start: 20190918
  2. BACTRIM [Concomitant]
     Active Substance: SULFAMETHOXAZOLE\TRIMETHOPRIM
     Indication: HERPES ZOSTER
  3. ACYCLOVIR [ACICLOVIR] [Concomitant]
     Active Substance: ACYCLOVIR
     Indication: HERPES ZOSTER
  4. RITUXIMAB. [Suspect]
     Active Substance: RITUXIMAB
     Indication: DIFFUSE LARGE B-CELL LYMPHOMA
     Route: 065
     Dates: start: 20190918
  5. BENDAMUSTINE [Suspect]
     Active Substance: BENDAMUSTINE
     Indication: DIFFUSE LARGE B-CELL LYMPHOMA
     Route: 065

REACTIONS (6)
  - Therapeutic product effect incomplete [Unknown]
  - Diarrhoea [Unknown]
  - Transaminases increased [Unknown]
  - Drug reaction with eosinophilia and systemic symptoms [Unknown]
  - Pancytopenia [Unknown]
  - Pneumonia [Fatal]
